FAERS Safety Report 8136027-6 (Version None)
Quarter: 2012Q1

REPORT INFORMATION
  Report Type: 
  Country: None (occurrence: None)
  Receive Date: 20120214
  Receipt Date: 20120208
  Transmission Date: 20120608
  Serious: No
  Sender: FDA-Public Use
  Company Number: US-PFIZER INC-2012036915

PATIENT
  Sex: Female

DRUGS (2)
  1. PREMPRO [Suspect]
     Dosage: EVERY OTHER DAY
  2. PREMPHASE (PREMARIN;CYCRIN 14/14) [Suspect]

REACTIONS (1)
  - HOT FLUSH [None]
